FAERS Safety Report 9118628 (Version 1)
Quarter: 2013Q1

REPORT INFORMATION
  Report Type: Spontaneous
  Country: US (occurrence: US)
  Receive Date: 20130226
  Receipt Date: 20130226
  Transmission Date: 20140127
  Serious: Yes (Other)
  Sender: FDA-Public Use
  Company Number: US-BAYER-2013-023454

PATIENT
  Sex: Female

DRUGS (2)
  1. YAZ [Suspect]
     Dosage: UNK
     Dates: start: 2004
  2. YASMIN [Suspect]
     Dosage: UNK
     Dates: start: 2004

REACTIONS (5)
  - Thrombosis [None]
  - Fear of disease [None]
  - Pain [None]
  - Injury [None]
  - Pain [None]
